FAERS Safety Report 19463384 (Version 1)
Quarter: 2021Q2

REPORT INFORMATION
  Report Type: Spontaneous
  Country: HR (occurrence: HR)
  Receive Date: 20210625
  Receipt Date: 20210625
  Transmission Date: 20210717
  Serious: Yes (Hospitalization)
  Sender: FDA-Public Use
  Company Number: HR-BAUSCH-BL-2021-021903

PATIENT
  Age: 46 Year
  Sex: Female

DRUGS (34)
  1. DICLOFENAC [Suspect]
     Active Substance: DICLOFENAC
     Indication: MIGRAINE
     Dosage: INITIAL DOSE
     Route: 048
  2. CEFTRIAXONE. [Suspect]
     Active Substance: CEFTRIAXONE
     Indication: URINARY TRACT INFECTION
  3. METHYLPREDNISOLONE. [Concomitant]
     Active Substance: METHYLPREDNISOLONE
     Dosage: TILL DAY 13 OF HOSPITALIZATION
     Route: 048
  4. CALCIUM CARBONATE. [Concomitant]
     Active Substance: CALCIUM CARBONATE
     Indication: PRODUCT USED FOR UNKNOWN INDICATION
     Dosage: SINCE DAY 14 OF HOSPITALIZATION
     Route: 065
  5. SULFAMETHOXAZOLE/TRIMETHOPRIM [Suspect]
     Active Substance: SULFAMETHOXAZOLE\TRIMETHOPRIM
     Indication: URINARY TRACT INFECTION
     Dosage: 400/80 MG TWO TIMES A DAY; TWO 14?DAY COURSES
     Route: 048
  6. PREDNISONE. [Suspect]
     Active Substance: PREDNISONE
     Indication: PRODUCT USED FOR UNKNOWN INDICATION
     Dosage: SINCE DAY 14 OF HOSPITALIZATION
     Route: 065
  7. FUROSEMIDE. [Suspect]
     Active Substance: FUROSEMIDE
     Indication: DIURETIC THERAPY
     Dosage: SINCE DAY 1 OF HOSPITALIZATION
     Route: 065
  8. FENOFIBRATE/SIMVASTATIN [Suspect]
     Active Substance: FENOFIBRATE\SIMVASTATIN
     Indication: PRODUCT USED FOR UNKNOWN INDICATION
     Dosage: 145/20 MG; 23 MONTHS AFTER THE SECOND HOSPITALISATION
     Route: 065
  9. CALCITRIOL. [Suspect]
     Active Substance: CALCITRIOL
     Indication: PRODUCT USED FOR UNKNOWN INDICATION
     Dosage: SINCE DAY 14 OF HOSPITALIZATION
     Route: 065
  10. METHYLPREDNISOLONE. [Concomitant]
     Active Substance: METHYLPREDNISOLONE
     Indication: PRODUCT USED FOR UNKNOWN INDICATION
     Dosage: SINCE DAY 11 OF HOSPITALIZATION, PULSE THERAPY
     Route: 042
  11. CALCIUM CARBONATE. [Concomitant]
     Active Substance: CALCIUM CARBONATE
     Dosage: ON DAY 21 OF HOSPITALIZATION, DURING DISCHARGE
     Route: 048
  12. CALCIUM CARBONATE. [Concomitant]
     Active Substance: CALCIUM CARBONATE
     Dosage: ON DAY 15 OF SECOND HOSPITALIZATION, DURING DISCHARGE
     Route: 065
  13. PANTOPRAZOLE [Suspect]
     Active Substance: PANTOPRAZOLE
     Dosage: ON DAY 15 OF SECOND HOSPITALIZATION, DURING DISCHARGE
     Route: 065
  14. PROPRANOLOL [Suspect]
     Active Substance: PROPRANOLOL HYDROCHLORIDE
     Indication: MIGRAINE
     Dosage: SINCE DAY 11 OF HOSPITALIZATION
     Route: 065
  15. PROPRANOLOL [Suspect]
     Active Substance: PROPRANOLOL HYDROCHLORIDE
     Dosage: ON DAY 15 OF SECOND HOSPITALIZATION, DURING DISCHARGE
     Route: 065
  16. POTASSIUM SUPPLEMENT [Concomitant]
     Active Substance: POTASSIUM
     Dosage: ON DAY 21 OF HOSPITALIZATION, DURING DISCHARGE
     Route: 065
  17. FUROSEMIDE. [Suspect]
     Active Substance: FUROSEMIDE
     Dosage: SINCE DAY 21 OF HOSPITALIZATION, DURING DISCHARGE
     Route: 048
  18. FENOFIBRATE/SIMVASTATIN [Suspect]
     Active Substance: FENOFIBRATE\SIMVASTATIN
     Dosage: 145/40 MG; STOPPED AFTER 2 MONTHS (25 MONTHS AFTER THE SECOND HOSPITALIZATION)
     Route: 065
  19. PROPRANOLOL [Suspect]
     Active Substance: PROPRANOLOL HYDROCHLORIDE
     Dosage: ON DAY 21 OF HOSPITALIZATION, DURING DISCHARGE
     Route: 048
  20. PREDNISONE. [Suspect]
     Active Substance: PREDNISONE
     Dosage: ON DAY 21 OF HOSPITALIZATION, DURING DISCHARGE, STOPPED ON DAY 12 OF SECOND HOSPITALIZATION
     Route: 048
  21. CALCITRIOL. [Suspect]
     Active Substance: CALCITRIOL
     Dosage: ON DAY 15 OF SECOND HOSPITALIZATION, DURING DISCHARGE
     Route: 065
  22. DICLOFENAC [Suspect]
     Active Substance: DICLOFENAC
     Dosage: 150?200 MG PER DAY; UPPED DOSE
     Route: 048
  23. FUROSEMIDE. [Suspect]
     Active Substance: FUROSEMIDE
     Dosage: DAY 15 OF SECOND HOSPITALIZATION, DURING DISCHARGE
     Route: 065
  24. PANTOPRAZOLE [Suspect]
     Active Substance: PANTOPRAZOLE
     Indication: PRODUCT USED FOR UNKNOWN INDICATION
     Dosage: SINCE DAY 11 OF HOSPITALIZATION
     Route: 065
  25. CEFUROXIME. [Concomitant]
     Active Substance: CEFUROXIME
     Dosage: SINCE DAY 15 OF SECOND HOSPITALIZATION, DURING DISCHARGE
     Route: 065
  26. ATORVASTATIN [Suspect]
     Active Substance: ATORVASTATIN
     Indication: DYSLIPIDAEMIA
     Dosage: SINCE DAY 18 OF HOSPITALIZATION
     Route: 065
  27. ATORVASTATIN [Suspect]
     Active Substance: ATORVASTATIN
     Dosage: ON DAY 21 OF HOSPITALIZATION, DURING DISCHARGE, STOPPED ON DAY 12 OF SECOND HOSPITALIZATION
     Route: 048
  28. POTASSIUM SUPPLEMENT [Concomitant]
     Active Substance: POTASSIUM
     Indication: PRODUCT USED FOR UNKNOWN INDICATION
     Dosage: SINCE DAY 1 OF HOSPITALIZATION
     Route: 065
  29. PANTOPRAZOLE [Suspect]
     Active Substance: PANTOPRAZOLE
     Dosage: ON DAY 21 OF HOSPITALIZATION, DURING DISCHARGE
     Route: 048
  30. CEFTRIAXONE. [Suspect]
     Active Substance: CEFTRIAXONE
     Indication: PNEUMONIA
     Dosage: SINCE FIRST DAY OF READMISSION, TILL DAY 7 OF READMISSION
     Route: 042
  31. CALCITRIOL. [Suspect]
     Active Substance: CALCITRIOL
     Dosage: ON DAY 21 OF HOSPITALIZATION, DURING DISCHARGE
     Route: 048
  32. METHYLPREDNISOLONE. [Concomitant]
     Active Substance: METHYLPREDNISOLONE
     Dosage: ON DAY 8 OF READMISSION
     Route: 065
  33. METHYLPREDNISOLONE. [Concomitant]
     Active Substance: METHYLPREDNISOLONE
     Dosage: DAY 15 OF SECOND HOSPITALIZATION, DURING DISCHARGE
     Route: 065
  34. CEFUROXIME. [Concomitant]
     Active Substance: CEFUROXIME
     Indication: PRODUCT USED FOR UNKNOWN INDICATION
     Dosage: SINCE DAY 8 OF READMISSION
     Route: 048

REACTIONS (3)
  - Drug interaction [Unknown]
  - Nephropathy toxic [Recovering/Resolving]
  - Drug-induced liver injury [Recovering/Resolving]
